FAERS Safety Report 6820952-X (Version None)
Quarter: 2010Q3

REPORT INFORMATION
  Report Type: 
  Country: None (occurrence: None)
  Receive Date: 20100707
  Receipt Date: 20070808
  Transmission Date: 20110219
  Serious: No
  Sender: FDA-Public Use
  Company Number: US-PFIZER INC-2007065882

PATIENT
  Age: 19 Year
  Sex: Male

DRUGS (2)
  1. ZOLOFT [Suspect]
     Route: 048
  2. ALCOHOL [Suspect]

REACTIONS (1)
  - VOMITING [None]
